FAERS Safety Report 12469568 (Version 1)
Quarter: 2016Q2

REPORT INFORMATION
  Report Type: Report from Study
  Country: RO (occurrence: RO)
  Receive Date: 20160615
  Receipt Date: 20160615
  Transmission Date: 20160815
  Serious: Yes (Other)
  Sender: FDA-Public Use
  Company Number: RO-ABBVIE-16P-135-1629968-00

PATIENT
  Sex: Male

DRUGS (1)
  1. DUODOPA [Suspect]
     Active Substance: CARBIDOPA\LEVODOPA
     Indication: PARKINSON^S DISEASE
     Dosage: MD-5 ML, CR-2.5 ML, ED-1.2 ML
     Route: 065
     Dates: start: 20150402

REACTIONS (7)
  - Cataract [Unknown]
  - Pyrexia [Unknown]
  - Rash erythematous [Unknown]
  - Cataract [Not Recovered/Not Resolved]
  - General physical condition abnormal [Unknown]
  - Freezing phenomenon [Not Recovered/Not Resolved]
  - Rash pruritic [Unknown]
